FAERS Safety Report 25807210 (Version 1)
Quarter: 2025Q3

REPORT INFORMATION
  Report Type: Report from Study
  Country: CA (occurrence: CA)
  Receive Date: 20250916
  Receipt Date: 20250916
  Transmission Date: 20251020
  Serious: Yes (Other)
  Sender: ASTELLAS
  Company Number: CA-ASTELLAS-2024US012035

PATIENT
  Sex: Male
  Weight: 56 kg

DRUGS (17)
  1. TACROLIMUS [Suspect]
     Active Substance: TACROLIMUS
     Indication: Immunosuppression
     Route: 048
  2. MYCOPHENOLATE MOFETIL [Suspect]
     Active Substance: MYCOPHENOLATE MOFETIL
     Indication: Immunosuppression
     Dosage: 360 MG, TWICE DAILY
     Route: 048
  3. MYCOPHENOLATE MOFETIL [Suspect]
     Active Substance: MYCOPHENOLATE MOFETIL
     Route: 048
  4. MYCOPHENOLATE MOFETIL [Suspect]
     Active Substance: MYCOPHENOLATE MOFETIL
     Dosage: 360 MG, TWICE DAILY
     Route: 048
  5. PREDNISONE ACETATE [Suspect]
     Active Substance: PREDNISONE ACETATE
     Indication: Immunosuppression
     Dosage: 20 MG, ONCE DAILY
     Route: 048
  6. SOLIRIS [Suspect]
     Active Substance: ECULIZUMAB
     Indication: Atypical haemolytic uraemic syndrome
     Route: 042
     Dates: start: 20121105, end: 20121203
  7. SOLIRIS [Suspect]
     Active Substance: ECULIZUMAB
     Dosage: SINGLE USE 300 MG/30 ML
     Route: 042
     Dates: start: 20121203, end: 20190410
  8. SOLIRIS [Suspect]
     Active Substance: ECULIZUMAB
     Dosage: SINGLE USE 300 MG/30 ML
     Route: 042
     Dates: start: 20190410
  9. AZATHIOPRINE [Concomitant]
     Active Substance: AZATHIOPRINE
     Indication: Immunosuppressant drug therapy
     Route: 048
  10. CINACALCET [Concomitant]
     Active Substance: CINACALCET
     Indication: Product used for unknown indication
     Route: 048
  11. CORTISONE [Concomitant]
     Active Substance: CORTISONE
     Indication: Product used for unknown indication
     Route: 065
  12. NIFEDIPINE [Concomitant]
     Active Substance: NIFEDIPINE
     Indication: Prophylaxis
     Route: 048
  13. PENICILLIN V POTASSIUM [Concomitant]
     Active Substance: PENICILLIN V POTASSIUM
     Indication: Product used for unknown indication
     Dosage: 300 MG, TWICE DAILY
     Route: 048
  14. VITAMIN D3 [Concomitant]
     Active Substance: CHOLECALCIFEROL
     Indication: Product used for unknown indication
     Route: 048
  15. VEDOLIZUMAB [Concomitant]
     Active Substance: VEDOLIZUMAB
     Indication: Product used for unknown indication
     Route: 065
  16. CHOLECALCIFEROL [Concomitant]
     Active Substance: CHOLECALCIFEROL
     Indication: Product used for unknown indication
     Route: 065
  17. PENICILLIN V POTASSIUM [Concomitant]
     Active Substance: PENICILLIN V POTASSIUM
     Indication: Product used for unknown indication
     Route: 065

REACTIONS (13)
  - Renal tubular injury [Unknown]
  - Hyperparathyroidism tertiary [Unknown]
  - Colitis ulcerative [Unknown]
  - Condition aggravated [Unknown]
  - Chronic allograft nephropathy [Unknown]
  - Immunosuppression [Unknown]
  - Parathyroid tumour benign [Unknown]
  - Bone density decreased [Unknown]
  - Normocytic anaemia [Unknown]
  - Anxiety [Recovering/Resolving]
  - Depressed mood [Recovering/Resolving]
  - Fatigue [Unknown]
  - Hypertension [Unknown]

NARRATIVE: CASE EVENT DATE: 20140101
